FAERS Safety Report 5508282-X (Version None)
Quarter: 2007Q4

REPORT INFORMATION
  Report Type: 
  Country: None (occurrence: None)
  Receive Date: 20071106
  Receipt Date: 20071102
  Transmission Date: 20080405
  Serious: Yes (Other)
  Sender: FDA-Public Use
  Company Number: US-BOEHRINGER INGELHEIM PHARMACEUTICALS, INC.-2007-BP-23878PF

PATIENT
  Sex: Male

DRUGS (7)
  1. SPIRIVA [Suspect]
     Route: 055
  2. BENICAR HCT [Concomitant]
     Indication: CARDIAC DISORDER
  3. NORVASC [Concomitant]
     Indication: CARDIAC DISORDER
  4. CLONIDINE [Concomitant]
     Indication: CARDIAC DISORDER
  5. ADVAIR DISKUS 100/50 [Concomitant]
     Indication: LUNG DISORDER
  6. ALBUTEROL [Concomitant]
     Indication: LUNG DISORDER
  7. VERAMYST [Concomitant]
     Indication: NASAL DISORDER

REACTIONS (1)
  - CORONARY ARTERY BYPASS [None]
